FAERS Safety Report 7638216-3 (Version None)
Quarter: 2011Q3

REPORT INFORMATION
  Report Type: 
  Country: None (occurrence: None)
  Receive Date: 20110720
  Receipt Date: 20110708
  Transmission Date: 20111222
  Serious: Yes (Hospitalization)
  Sender: FDA-Public Use
  Company Number: 2011EK000017

PATIENT
  Age: 70 Year
  Sex: Male
  Weight: 96 kg

DRUGS (7)
  1. CYCLIZINE [Concomitant]
  2. DEPODUR [Suspect]
     Indication: KNEE ARTHROPLASTY
     Dosage: 10 MG;X1;ED
     Dates: start: 20101102, end: 20101102
  3. MARCAINE [Concomitant]
  4. DEXAMETHASONE [Concomitant]
  5. ACETAMINOPHEN [Concomitant]
  6. ONDANSETRON [Concomitant]
  7. GABAPENTIN [Concomitant]

REACTIONS (5)
  - AGGRESSION [None]
  - UNRESPONSIVE TO STIMULI [None]
  - SOMNOLENCE [None]
  - OXYGEN SATURATION DECREASED [None]
  - RESPIRATORY DEPRESSION [None]
